FAERS Safety Report 8588721-0 (Version None)
Quarter: 2012Q3

REPORT INFORMATION
  Report Type: 
  Country: None (occurrence: None)
  Receive Date: 20120813
  Receipt Date: 20120808
  Transmission Date: 20120928
  Serious: Yes (Hospitalization)
  Sender: FDA-Public Use
  Company Number: PHHY2012JP046334

PATIENT
  Sex: Male
  Weight: 42 kg

DRUGS (10)
  1. EXELON [Suspect]
     Dosage: 18 MG, DAILY
     Route: 062
     Dates: start: 20120324, end: 20120413
  2. EXELON [Suspect]
     Dosage: 9 MG, DAILY
     Route: 062
     Dates: start: 20120225, end: 20120308
  3. RETICOLAN [Concomitant]
     Indication: ANAEMIA MACROCYTIC
     Dosage: 1000 UG, UNK
     Route: 048
     Dates: start: 20110106, end: 20120413
  4. EXELON [Suspect]
     Dosage: 13.5 MG, DAILY
     Route: 062
     Dates: start: 20120309, end: 20120323
  5. PHENLASE [Concomitant]
     Indication: DIARRHOEA
     Dosage: 2 DF, UNK
     Route: 048
     Dates: start: 20120406, end: 20120411
  6. EXELON [Suspect]
     Indication: DEMENTIA ALZHEIMER'S TYPE
     Dosage: 4.5 MG, DAILY
     Route: 062
     Dates: start: 20120113, end: 20120224
  7. REMODELLIN [Concomitant]
     Indication: OSTEOPOROSIS
     Route: 048
     Dates: start: 20120325, end: 20120413
  8. YOKUKAN-SAN [Concomitant]
     Indication: DEMENTIA ALZHEIMER'S TYPE
     Dosage: 5 G, DAILY
     Route: 048
     Dates: start: 20120113, end: 20120411
  9. LANSOPRAZOLE [Concomitant]
     Indication: NAUSEA
     Dosage: 30 MG, DAILY
     Route: 048
     Dates: end: 20120411
  10. SUNRYTHM [Concomitant]
     Indication: ARRHYTHMIA
     Dosage: 100 MG,DAILY
     Route: 048
     Dates: start: 20120309, end: 20120411

REACTIONS (3)
  - DECREASED APPETITE [None]
  - MALAISE [None]
  - NAUSEA [None]
